FAERS Safety Report 4274681-X (Version None)
Quarter: 2004Q1

REPORT INFORMATION
  Report Type: 
  Country: None (occurrence: None)
  Receive Date: 20040115
  Receipt Date: 20031218
  Transmission Date: 20041129
  Serious: Yes (Other)
  Sender: FDA-Public Use
  Company Number: MAG-2003-0000185

PATIENT
  Age: 45 Year
  Sex: Female

DRUGS (4)
  1. THEOPHYLLINE [Suspect]
     Indication: ASTHMA
     Dosage: 400 MG, DAILY, ORAL
     Route: 048
     Dates: start: 20030828, end: 20030830
  2. THEOPHYLLINE [Suspect]
     Indication: ASTHMA
     Dosage: 400 MG, DAILY, ORAL
     Route: 048
     Dates: start: 20031009, end: 20031009
  3. PROCATEROL HCL [Suspect]
     Indication: ASTHMA
     Dosage: 100 MCG, DAILY, ORAL
     Route: 048
     Dates: start: 20030828, end: 20030830
  4. PROCATEROL HCL [Suspect]
     Indication: ASTHMA
     Dosage: 100 MCG, DAILY, ORAL
     Route: 048
     Dates: start: 20031009, end: 20031010

REACTIONS (4)
  - ACTIVITIES OF DAILY LIVING IMPAIRED [None]
  - BLOOD POTASSIUM DECREASED [None]
  - HYPOAESTHESIA [None]
  - TREMOR [None]
